FAERS Safety Report 6369790-5 (Version None)
Quarter: 2009Q3

REPORT INFORMATION
  Report Type: 
  Country: None (occurrence: None)
  Receive Date: 20090923
  Receipt Date: 20090914
  Transmission Date: 20100115
  Serious: Yes (Other)
  Sender: FDA-Public Use
  Company Number: GB-ASTRAZENECA-2009SE12927

PATIENT
  Age: 69 Year

DRUGS (16)
  1. NEXIUM [Suspect]
     Indication: OESOPHAGITIS
     Route: 048
     Dates: start: 20090803, end: 20090801
  2. ADALAT [Concomitant]
  3. ALPROSTADIL [Concomitant]
     Indication: URETHRAL DISCHARGE
  4. ASPIRIN [Concomitant]
  5. BENDROFLUMETHIAZIDE [Concomitant]
  6. CLENIL [Concomitant]
  7. DULCOLAX [Concomitant]
  8. ENALAPRIL MALEATE [Concomitant]
  9. ESOMEPRAZOLE [Concomitant]
  10. FERROUS FUMARATE [Concomitant]
  11. FINASTERIDE [Concomitant]
  12. GAVISCON [Concomitant]
  13. IPRATROPIUM BROMIDE [Concomitant]
  14. SALMETEROL XINAFOATE [Concomitant]
  15. SIMVASTATIN [Concomitant]
  16. TOLTERODINE TARTATRATE [Concomitant]

REACTIONS (3)
  - AGITATION [None]
  - HALLUCINATION, VISUAL [None]
  - RESTLESSNESS [None]
